FAERS Safety Report 9311779 (Version 1)
Quarter: 2013Q2

REPORT INFORMATION
  Report Type: Spontaneous
  Country: KR (occurrence: KR)
  Receive Date: 20130528
  Receipt Date: 20130528
  Transmission Date: 20140414
  Serious: Yes (Other)
  Sender: FDA-Public Use
  Company Number: PHHY2013KR051090

PATIENT
  Age: 11 Year
  Sex: Female

DRUGS (1)
  1. PREDNISOLONE [Suspect]
     Indication: EOSINOPHILIC CELLULITIS
     Route: 048

REACTIONS (2)
  - Intraocular pressure increased [Unknown]
  - Drug dependence [Unknown]
